FAERS Safety Report 11908267 (Version 1)
Quarter: 2016Q1

REPORT INFORMATION
  Report Type: Spontaneous
  Country: US (occurrence: US)
  Receive Date: 20160111
  Receipt Date: 20160111
  Transmission Date: 20160526
  Serious: Yes (Other)
  Sender: FDA-Public Use
  Company Number: US-TEVA-623584USA

PATIENT
  Age: 43 Year
  Sex: Female

DRUGS (4)
  1. COPAXONE [Suspect]
     Active Substance: GLATIRAMER ACETATE
     Indication: MULTIPLE SCLEROSIS
     Route: 058
     Dates: start: 20150714
  2. ABILIFY [Concomitant]
     Active Substance: ARIPIPRAZOLE
     Route: 048
     Dates: start: 20121017
  3. ZOLOFT [Concomitant]
     Active Substance: SERTRALINE HYDROCHLORIDE
     Route: 048
     Dates: start: 20121017
  4. RISPERDAL [Concomitant]
     Active Substance: RISPERIDONE
     Route: 048
     Dates: start: 20121017

REACTIONS (2)
  - Injection site erythema [Unknown]
  - Injection site reaction [Unknown]

NARRATIVE: CASE EVENT DATE: 20160104
